FAERS Safety Report 19886049 (Version 2)
Quarter: 2022Q4

REPORT INFORMATION
  Report Type: Spontaneous
  Country: US (occurrence: US)
  Receive Date: 20210927
  Receipt Date: 20221018
  Transmission Date: 20230113
  Serious: No
  Sender: FDA-Public Use
  Company Number: US-CELLTRION INC.-2021US005269

PATIENT

DRUGS (4)
  1. INFLECTRA [Suspect]
     Active Substance: INFLIXIMAB-DYYB
     Indication: Product used for unknown indication
     Route: 065
  2. ENBREL [Suspect]
     Active Substance: ETANERCEPT
     Indication: Product used for unknown indication
  3. XELJANZ XR [Suspect]
     Active Substance: TOFACITINIB CITRATE
     Indication: Product used for unknown indication
  4. HUMIRA [Suspect]
     Active Substance: ADALIMUMAB
     Indication: Product used for unknown indication

REACTIONS (9)
  - Neurological symptom [Unknown]
  - Drug specific antibody present [Unknown]
  - Psoriasis [Unknown]
  - Condition aggravated [Unknown]
  - Malaise [Unknown]
  - Pain in extremity [Unknown]
  - Chest discomfort [Unknown]
  - Treatment failure [Unknown]
  - Product dose omission issue [Unknown]
